FAERS Safety Report 18292638 (Version 1)
Quarter: 2020Q3

REPORT INFORMATION
  Report Type: Spontaneous
  Country: DE (occurrence: DE)
  Receive Date: 20200922
  Receipt Date: 20200922
  Transmission Date: 20201103
  Serious: Yes (Hospitalization, Other)
  Sender: FDA-Public Use
  Company Number: DE-ALKEM LABORATORIES LIMITED-DE-ALKEM-2020-03484

PATIENT
  Age: 55 Year
  Sex: Male

DRUGS (1)
  1. SILDENAFIL. [Suspect]
     Active Substance: SILDENAFIL
     Indication: ERECTILE DYSFUNCTION
     Dosage: 200 MG: TWICE AS MAXIMUM APPROVED DAILY DOSE)
     Route: 065

REACTIONS (3)
  - Vomiting [Unknown]
  - Thunderclap headache [Unknown]
  - Subarachnoid haemorrhage [Unknown]
